FAERS Safety Report 10073465 (Version 1)
Quarter: 2014Q2

REPORT INFORMATION
  Report Type: Spontaneous
  Country: JP (occurrence: JP)
  Receive Date: 20140411
  Receipt Date: 20140411
  Transmission Date: 20141212
  Serious: Yes (Other)
  Sender: FDA-Public Use
  Company Number: JP-ACTAVIS-2014-06858

PATIENT
  Age: 45 Year
  Sex: Male

DRUGS (5)
  1. DOCETAXEL (UNKNOWN) [Suspect]
     Indication: GASTRIC CANCER
     Dosage: 40 MG/M2, DAY 1 (16 COURSES)
     Route: 065
     Dates: start: 200906
  2. TS-1                               /01593501/ [Suspect]
     Indication: GASTRIC CANCER
     Dosage: 100 MG/BODY, DAY 1-14 (16 COURSES)
     Route: 065
     Dates: start: 200906
  3. TS-1                               /01593501/ [Suspect]
     Dosage: 100 MG/BODY, DAYS 1-21
     Route: 065
     Dates: start: 200709
  4. TS-1                               /01593501/ [Suspect]
     Dosage: 100 MG/BODY, EIGHT COURSES
     Route: 048
     Dates: start: 200806
  5. CISPLATIN (UNKNOWN) [Suspect]
     Indication: GASTRIC CANCER STAGE IV
     Dosage: 60 MG/M2, DAY 8 (SIX COURSES)
     Route: 065
     Dates: start: 200709

REACTIONS (1)
  - Neuropathy peripheral [Not Recovered/Not Resolved]
